FAERS Safety Report 5786975-7 (Version None)
Quarter: 2008Q2

REPORT INFORMATION
  Report Type: 
  Country: None (occurrence: None)
  Receive Date: 20080623
  Receipt Date: 20080623
  Transmission Date: 20081010
  Serious: Yes (Hospitalization)
  Sender: FDA-Public Use
  Company Number: None

PATIENT
  Sex: Male

DRUGS (2)
  1. CISPLATIN [Suspect]
     Indication: SQUAMOUS CELL CARCINOMA
     Dosage: 147 MG Q21 DAYS IVPB
     Route: 042
     Dates: start: 20080512, end: 20080616
  2. PACLITAXEL [Suspect]
     Indication: SQUAMOUS CELL CARCINOMA
     Dosage: 343 MG Q21 DAYS IVPB
     Route: 042
     Dates: start: 20080512, end: 20080616

REACTIONS (5)
  - ARTHRITIS INFECTIVE [None]
  - JAUNDICE [None]
  - LIVER FUNCTION TEST ABNORMAL [None]
  - SEPSIS [None]
  - SYNCOPE [None]
